FAERS Safety Report 20609054 (Version 1)
Quarter: 2022Q1

REPORT INFORMATION
  Report Type: Spontaneous
  Country: US (occurrence: US)
  Receive Date: 20220317
  Receipt Date: 20220317
  Transmission Date: 20220423
  Serious: No
  Sender: FDA-Public Use
  Company Number: US-SMITH AND NEPHEW, INC-2021SMT00036

PATIENT
  Age: 98 Year
  Sex: Male

DRUGS (1)
  1. COLLAGENASE SANTYL [Suspect]
     Active Substance: COLLAGENASE CLOSTRIDIUM HISTOLYTICUM
     Indication: Electrical burn
     Route: 061

REACTIONS (3)
  - Wound infection [Not Recovered/Not Resolved]
  - Application site discolouration [Not Recovered/Not Resolved]
  - Scab [Unknown]
